FAERS Safety Report 11100008 (Version 2)
Quarter: 2015Q3

REPORT INFORMATION
  Report Type: Spontaneous
  Country: US (occurrence: US)
  Receive Date: 20150508
  Receipt Date: 20150731
  Transmission Date: 20151125
  Serious: Yes (Other)
  Sender: FDA-Public Use
  Company Number: US-PFIZER INC-2015154244

PATIENT
  Age: 59 Year
  Sex: Female
  Weight: 84 kg

DRUGS (32)
  1. BUSPAR [Concomitant]
     Active Substance: BUSPIRONE HYDROCHLORIDE
     Dosage: 10 MG, 3X/DAY
  2. MYOFLEX /00021207/ [Concomitant]
     Indication: SKIN DISORDER
     Dosage: UNK
     Route: 061
  3. PULMICORT TURBUHALER [Concomitant]
     Active Substance: BUDESONIDE
     Dosage: UNK
  4. NASONEX [Concomitant]
     Active Substance: MOMETASONE FUROATE
     Dosage: 50 MCG/ACT ONCE SPRAY TWICE A DAY
  5. ATROVENT [Concomitant]
     Active Substance: IPRATROPIUM BROMIDE
     Dosage: 0.02 %, 4X/DAY (AS DIRECTED)
  6. SYMBICORT [Concomitant]
     Active Substance: BUDESONIDE\FORMOTEROL FUMARATE DIHYDRATE
     Dosage: 2X/DAY (80-4.5 MCG/ACT, INHALE 2 PUFFS TWICE DAILY
  7. ALBUTEROL. [Concomitant]
     Active Substance: ALBUTEROL
     Dosage: 2.5 MG, AS NEEDED (EVERY 6 HOURS AS NEEDED)
  8. PRILOSEC [Concomitant]
     Active Substance: OMEPRAZOLE MAGNESIUM
     Dosage: 40 MG, 1X/DAY
     Route: 048
  9. COUMADINE [Concomitant]
     Active Substance: WARFARIN SODIUM
     Dosage: 10 MG SUN AND THUR AND 7.5 MG THE REST OF THE WEEK
  10. SINGULAIR [Concomitant]
     Active Substance: MONTELUKAST SODIUM
     Dosage: 10 MG, 1X/DAY AT BEDTIME
     Route: 048
  11. COLACE [Concomitant]
     Active Substance: DOCUSATE SODIUM
     Dosage: 200 MG, DAILY
  12. NASONEX [Concomitant]
     Active Substance: MOMETASONE FUROATE
     Dosage: 0.3 MG, UNK (1 SPRAY IN EACH NOSTRIL TWICE DAILY)
     Route: 045
  13. NITRO-DUR [Concomitant]
     Active Substance: NITROGLYCERIN
     Dosage: 0.2 MG, PATCH ONCE A DAY
  14. ALPRAZOLAM. [Concomitant]
     Active Substance: ALPRAZOLAM
     Dosage: 0.5 MG, 3X/DAY (AS NEEDED)
     Route: 048
  15. FENTANYL. [Concomitant]
     Active Substance: FENTANYL
     Dosage: TRANSDERMAL PATCH 72 HOUR USE AS DIRECTED)
     Route: 062
  16. HYDROCODONE/ACETAMINOPHEN [Concomitant]
     Active Substance: ACETAMINOPHEN\HYDROCODONE
     Dosage: 5 MG/ 325 MG 1 TABLET EVERY 4 TO 6 HOURS AS NEEDED
     Route: 048
  17. LEVETIRACETAM. [Concomitant]
     Active Substance: LEVETIRACETAM
     Dosage: IN NSCL 1000 MG/100 ML
     Route: 042
  18. CARDIZEM CD [Concomitant]
     Active Substance: DILTIAZEM HYDROCHLORIDE
     Dosage: 240 MG, 2X/DAY
     Route: 048
     Dates: start: 20150220
  19. PRAVACHOL [Concomitant]
     Active Substance: PRAVASTATIN SODIUM
     Dosage: 10 MG, 1X/DAY AT BEDTIME
     Route: 048
  20. ASPIRIN. [Concomitant]
     Active Substance: ASPIRIN
     Dosage: UNK
  21. VITAMIN C [Concomitant]
     Active Substance: ASCORBIC ACID
     Dosage: 500 MG, 2X/DAY
     Route: 048
  22. TIKOSYN [Suspect]
     Active Substance: DOFETILIDE
     Indication: ATRIAL FIBRILLATION
     Dosage: 250 MG, UNK
     Route: 048
     Dates: start: 201203
  23. THEOPHYLLINE CR [Concomitant]
     Active Substance: THEOPHYLLINE ANHYDROUS
     Dosage: 100 MG, 2X/DAY
     Route: 048
  24. BROVANA [Concomitant]
     Active Substance: ARFORMOTEROL TARTRATE
     Dosage: 2X/DAY (15MCG/2ML/ AS DIRECTED)
  25. MUCINEX [Concomitant]
     Active Substance: GUAIFENESIN
     Dosage: 600 MG, 2X/DAY
  26. ATIVAN [Concomitant]
     Active Substance: LORAZEPAM
     Dosage: 0.5 MG, 3X/DAY
  27. DIFLUNISAL. [Concomitant]
     Active Substance: DIFLUNISAL
     Dosage: 500 MG, 2X/DAY
     Route: 048
  28. KLOR-CON M20 [Concomitant]
     Active Substance: POTASSIUM CHLORIDE
     Dosage: 20 MEQ, 1X/DAY
  29. NITROSTAT [Concomitant]
     Active Substance: NITROGLYCERIN
     Indication: CHEST PAIN
     Dosage: 0.3 MG, AS NEEDED
     Route: 060
     Dates: start: 20120723
  30. ELAVIL [Concomitant]
     Active Substance: AMITRIPTYLINE HYDROCHLORIDE
     Dosage: 25 MG, 1X/DAY AT BEDTIME
     Route: 048
  31. ECOTRIN [Concomitant]
     Active Substance: ASPIRIN
     Dosage: 325 MG, DAILY
     Route: 048
  32. ZOFRAN [Concomitant]
     Active Substance: ONDANSETRON HYDROCHLORIDE
     Dosage: 4 MG, UNK
     Route: 048

REACTIONS (4)
  - International normalised ratio abnormal [Unknown]
  - Seizure [Unknown]
  - Depression [Unknown]
  - Fatigue [Unknown]

NARRATIVE: CASE EVENT DATE: 20141211
